FAERS Safety Report 9427128 (Version 1)
Quarter: 2013Q3

REPORT INFORMATION
  Report Type: Spontaneous
  Country: US (occurrence: None)
  Receive Date: 20130729
  Receipt Date: 20130729
  Transmission Date: 20140515
  Serious: No
  Sender: FDA-Public Use
  Company Number: None

PATIENT
  Age: 76 Year
  Sex: Male
  Weight: 108.86 kg

DRUGS (8)
  1. ATORVASTATIN [Suspect]
     Indication: BLOOD CHOLESTEROL INCREASED
     Route: 048
     Dates: start: 20130611, end: 20130707
  2. LOSARTAN/HCTZ TAB 100-25MC [Concomitant]
  3. FENOFIBRATE CAP 134MG [Concomitant]
  4. CARVEDILOL 12.5MG [Concomitant]
  5. ATORVASTATIN 40MG WATSON [Concomitant]
  6. B-12 [Concomitant]
  7. FISH OIL [Concomitant]
  8. VITAMIN C [Concomitant]

REACTIONS (4)
  - Anxiety [None]
  - Dyspnoea [None]
  - Insomnia [None]
  - Disorientation [None]
